FAERS Safety Report 5341432-7 (Version None)
Quarter: 2007Q2

REPORT INFORMATION
  Report Type: 
  Country: None (occurrence: None)
  Receive Date: 20070601
  Receipt Date: 20070521
  Transmission Date: 20071010
  Serious: Yes (Other)
  Sender: FDA-Public Use
  Company Number: GB-JNJFOC-20070505240

PATIENT
  Sex: Female
  Weight: 62 kg

DRUGS (8)
  1. INFLIXIMAB [Suspect]
     Indication: RHEUMATOID ARTHRITIS
     Route: 042
  2. PREDNISOLONE [Concomitant]
  3. ADALAT [Concomitant]
  4. FOSAMAX [Concomitant]
  5. FRUSEMIDE [Concomitant]
  6. OMEPRAZOLE [Concomitant]
  7. ACETAMINOPHEN W/ CODEINE [Concomitant]
  8. VALSARTAN [Concomitant]

REACTIONS (1)
  - RECTAL CANCER [None]
